FAERS Safety Report 9538695 (Version 1)
Quarter: 2013Q2

REPORT INFORMATION
  Report Type: Spontaneous
  Country: US (occurrence: None)
  Receive Date: 20130517
  Receipt Date: 20130517
  Transmission Date: 20140414
  Serious: No
  Sender: FDA-Public Use
  Company Number: 1000042939

PATIENT
  Age: 53 Year
  Sex: Female

DRUGS (5)
  1. VIIBRYD (VILAZODONE HYDROCHLORIDE) (10 MILLIGRAM, TABLETS) [Suspect]
     Indication: ANXIETY
     Dosage: 10 MG, 1 IN 1 D
     Route: 048
     Dates: start: 20130213, end: 20130219
  2. ALPRAZOLAM [Concomitant]
  3. SINGULAIR [Concomitant]
  4. SYMBICORT [Concomitant]
  5. VITAMIN D [Concomitant]

REACTIONS (2)
  - Tinnitus [None]
  - Off label use [None]
